FAERS Safety Report 7228450-9 (Version None)
Quarter: 2011Q1

REPORT INFORMATION
  Report Type: 
  Country: None (occurrence: None)
  Receive Date: 20110114
  Receipt Date: 20110112
  Transmission Date: 20110831
  Serious: Yes (Death)
  Sender: FDA-Public Use
  Company Number: US-GENENTECH-312383

PATIENT
  Age: 60 Year
  Sex: Male

DRUGS (1)
  1. ACTIVASE [Suspect]
     Indication: THROMBOSIS
     Dosage: UNK

REACTIONS (1)
  - DISSEMINATED INTRAVASCULAR COAGULATION [None]
